FAERS Safety Report 15668842 (Version 1)
Quarter: 2018Q4

REPORT INFORMATION
  Report Type: Spontaneous
  Country: BG (occurrence: BG)
  Receive Date: 20181129
  Receipt Date: 20181129
  Transmission Date: 20190205
  Serious: Yes (Other)
  Sender: FDA-Public Use
  Company Number: BG-ROCHE-2219782

PATIENT
  Age: 83 Year
  Sex: Female

DRUGS (2)
  1. ACTILYSE [Suspect]
     Active Substance: ALTEPLASE
     Indication: HEMIPLEGIA
     Route: 065
  2. ACTILYSE [Suspect]
     Active Substance: ALTEPLASE
     Indication: CEREBRAL ARTERY OCCLUSION

REACTIONS (5)
  - Hemiparesis [Recovered/Resolved]
  - Product use issue [Unknown]
  - Hemiplegia [Recovered/Resolved]
  - Aphasia [Recovered/Resolved]
  - Cerebral haematoma [Recovered/Resolved]
